FAERS Safety Report 5713076-6 (Version None)
Quarter: 2008Q2

REPORT INFORMATION
  Report Type: 
  Country: None (occurrence: None)
  Receive Date: 20080422
  Receipt Date: 20080415
  Transmission Date: 20081010
  Serious: Yes (Other)
  Sender: FDA-Public Use
  Company Number: PHHY2008BR05977

PATIENT
  Age: 53 Year
  Sex: Female

DRUGS (1)
  1. FORASEQ [Suspect]
     Indication: ASTHMA
     Dosage: 12/400MCG, 2/DAY
     Dates: start: 20030101

REACTIONS (2)
  - DEFORMITY THORAX [None]
  - WEIGHT INCREASED [None]
